FAERS Safety Report 4717691-8 (Version None)
Quarter: 2005Q3

REPORT INFORMATION
  Report Type: 
  Country: None (occurrence: None)
  Receive Date: 20050715
  Receipt Date: 20050228
  Transmission Date: 20060218
  Serious: Yes (Hospitalization)
  Sender: FDA-Public Use
  Company Number: 05H-163-0292942-00

PATIENT
  Age: 18 Year
  Sex: Male

DRUGS (8)
  1. BUPIVACAINE HCL [Suspect]
     Indication: PAIN MANAGEMENT
     Dosage: INJECTION
     Dates: start: 20050211, end: 20050211
  2. PROPOFOL [Suspect]
     Indication: INDUCTION OF ANAESTHESIA
     Dates: start: 20050211, end: 20050211
  3. SUXAMETHONIUM CHLORIDE [Suspect]
     Dates: start: 20050211, end: 20050211
  4. SEVOFLURANE [Suspect]
     Indication: GENERAL ANAESTHESIA
     Dates: start: 20050211, end: 20050211
  5. DOLASETRON MESILATE [Suspect]
     Indication: PROPHYLAXIS OF NAUSEA AND VOMITING
     Dosage: 12.5 MG, ONCE, INTRAVENOUS
     Route: 042
     Dates: start: 20050211, end: 20050211
  6. OXYGEN [Concomitant]
  7. MIDAZOLAM HYDROCHLORIDE [Concomitant]
  8. FENTANYL [Concomitant]

REACTIONS (1)
  - DYSKINESIA [None]
